FAERS Safety Report 8198160 (Version 3)
Quarter: 2014Q2

REPORT INFORMATION
  Report Type: Spontaneous
  Country: CA (occurrence: CA)
  Receive Date: 20111025
  Receipt Date: 20140404
  Transmission Date: 20141212
  Serious: Yes (Hospitalization, Other)
  Sender: FDA-Public Use
  Company Number: CA-JNJFOC-20111006688

PATIENT
  Age: 51 Year
  Sex: Male

DRUGS (5)
  1. RISPERIDONE [Suspect]
     Indication: DEPRESSION
     Route: 065
  2. RISPERIDONE [Suspect]
     Indication: AGITATION
     Route: 065
  3. PAROXETINE [Concomitant]
     Indication: PRODUCT USED FOR UNKNOWN INDICATION
     Route: 065
  4. ANTIDEPRESSANT MEDICATION [Concomitant]
     Route: 065
  5. WARFARIN SODIUM [Concomitant]
     Indication: PRODUCT USED FOR UNKNOWN INDICATION
     Route: 065

REACTIONS (9)
  - Suicidal ideation [Unknown]
  - Tardive dyskinesia [Recovering/Resolving]
  - Depression [Recovering/Resolving]
  - Agitation [Recovered/Resolved]
  - Psychomotor hyperactivity [Unknown]
  - Feeling of despair [Unknown]
  - Flat affect [Unknown]
  - Insomnia [Unknown]
  - Decreased appetite [Unknown]
